FAERS Safety Report 8318857-0 (Version None)
Quarter: 2012Q2

REPORT INFORMATION
  Report Type: 
  Country: None (occurrence: None)
  Receive Date: 20120427
  Receipt Date: 20120425
  Transmission Date: 20120825
  Serious: Yes (Death, Life-Threatening, Other)
  Sender: FDA-Public Use
  Company Number: JP-B.I. PHARMACEUTICALS,INC./RIDGEFIELD-2011-BP-25552NB

PATIENT
  Sex: Male
  Weight: 53.4 kg

DRUGS (7)
  1. PURSENNID [Concomitant]
     Indication: CONSTIPATION
     Dosage: 12 MG
     Route: 065
     Dates: end: 20111031
  2. PRADAXA [Suspect]
     Indication: ATRIAL FIBRILLATION
     Dosage: 110 MG
     Route: 048
     Dates: start: 20110615, end: 20111031
  3. ARICEPT [Concomitant]
     Indication: DEMENTIA
     Dosage: 5 MG
     Route: 048
     Dates: end: 20111031
  4. IMIDAPRIL HYDROCHLORIDE [Concomitant]
     Indication: HYPERTENSION
     Dosage: 5 MG
     Route: 065
     Dates: end: 20111031
  5. MAGMITT [Concomitant]
     Indication: CONSTIPATION
     Dosage: 330 MG
     Route: 065
     Dates: end: 20111031
  6. FAMOTIDINE [Concomitant]
     Indication: GASTRITIS
     Dosage: 10 MG
     Route: 048
     Dates: end: 20111031
  7. TORSEMIDE [Concomitant]
     Indication: OEDEMA
     Dosage: 4 MG
     Route: 048
     Dates: end: 20111031

REACTIONS (4)
  - MULTI-ORGAN FAILURE [None]
  - DEMENTIA [None]
  - PNEUMONIA ASPIRATION [None]
  - CEREBRAL HAEMORRHAGE [None]
